FAERS Safety Report 7283532-0 (Version None)
Quarter: 2011Q1

REPORT INFORMATION
  Report Type: 
  Country: None (occurrence: None)
  Receive Date: 20110209
  Receipt Date: 20110204
  Transmission Date: 20110831
  Serious: Yes (Hospitalization, Other)
  Sender: FDA-Public Use
  Company Number: US-AMGEN-USASP2011005518

PATIENT
  Age: 59 Year
  Sex: Male

DRUGS (2)
  1. LITHIUM [Concomitant]
  2. ENBREL [Suspect]
     Indication: PSORIASIS
     Dosage: 50 MG, 2 TIMES/WK
     Dates: start: 20101201, end: 20110101

REACTIONS (6)
  - DYSPHONIA [None]
  - CEREBROVASCULAR ACCIDENT [None]
  - FALL [None]
  - HEART RATE DECREASED [None]
  - ANTIPSYCHOTIC DRUG LEVEL [None]
  - TREMOR [None]
